FAERS Safety Report 9785359 (Version 2)
Quarter: 2014Q2

REPORT INFORMATION
  Report Type: Spontaneous
  Country: FR (occurrence: None)
  Receive Date: 20131223
  Receipt Date: 20140411
  Transmission Date: 20141212
  Serious: Yes (Death)
  Sender: FDA-Public Use
  Company Number: FR-014055

PATIENT
  Age: 39 Year
  Sex: Female
  Weight: 84 kg

DRUGS (2)
  1. PROPESS [Suspect]
     Indication: PRODUCT USED FOR UNKNOWN INDICATION
     Dosage: VAGINAL CERVIX RIPENING
     Route: 067
     Dates: start: 20131209, end: 20131209
  2. PROPESS [Suspect]
     Indication: INDUCTION OF CERVIX RIPENING
     Dosage: VAGINAL CERVIX RIPENING
     Route: 067
     Dates: start: 20131209, end: 20131209

REACTIONS (3)
  - Anaphylactoid syndrome of pregnancy [None]
  - Maternal exposure during delivery [None]
  - Maternal death during childbirth [None]
